FAERS Safety Report 9290043 (Version 1)
Quarter: 2012Q4

REPORT INFORMATION
  Report Type: Spontaneous
  Country: US (occurrence: None)
  Receive Date: 20121002
  Receipt Date: 20121002
  Transmission Date: 20130627
  Serious: Yes (Other)
  Sender: FDA-Public Use
  Company Number: 2012SGN00363

PATIENT
  Age: 59 Year
  Sex: Male
  Weight: 99.7 kg

DRUGS (2)
  1. BRENTUXIMAB VEDOTIN [Suspect]
     Indication: HODGKIN^S LYMPHOMA
     Route: 042
     Dates: start: 20100716, end: 20110617
  2. SARNA (CAMPHOR, MENTHOL, PHENOL) [Concomitant]

REACTIONS (1)
  - Myelodysplastic syndrome [None]
